FAERS Safety Report 4607099-8 (Version None)
Quarter: 2005Q1

REPORT INFORMATION
  Report Type: 
  Country: None (occurrence: None)
  Receive Date: 20050310
  Receipt Date: 20050121
  Transmission Date: 20050727
  Serious: Yes (Hospitalization, Other)
  Sender: FDA-Public Use
  Company Number: 2004210467US

PATIENT
  Age: 71 Year
  Sex: Female
  Weight: 68.4932 kg

DRUGS (1)
  1. BEXTRA [Suspect]
     Indication: ARTHRITIS

REACTIONS (4)
  - ACTINIC KERATOSIS [None]
  - ARTHRALGIA [None]
  - MALAISE [None]
  - STEVENS-JOHNSON SYNDROME [None]
